FAERS Safety Report 5589454-5 (Version None)
Quarter: 2008Q1

REPORT INFORMATION
  Report Type: 
  Country: None (occurrence: None)
  Receive Date: 20080109
  Receipt Date: 20080109
  Transmission Date: 20080703
  Serious: No
  Sender: FDA-Public Use
  Company Number: None

PATIENT
  Age: 52 Year
  Sex: Male

DRUGS (1)
  1. ASPIRIN [Suspect]
     Dosage: 850MG TID PO
     Route: 048
     Dates: start: 20071101, end: 20071130

REACTIONS (3)
  - HAEMORRHAGE [None]
  - PEPTIC ULCER [None]
  - SELF-MEDICATION [None]
